FAERS Safety Report 21964186 (Version 2)
Quarter: 2023Q1

REPORT INFORMATION
  Report Type: Report from Study
  Country: US (occurrence: US)
  Receive Date: 20230207
  Receipt Date: 20230221
  Transmission Date: 20230417
  Serious: Yes (Other)
  Sender: FDA-Public Use
  Company Number: US-OTSUKA-2022_032103

PATIENT
  Age: 43 Year
  Sex: Male

DRUGS (11)
  1. TOLVAPTAN [Suspect]
     Active Substance: TOLVAPTAN
     Indication: Congenital cystic kidney disease
     Dosage: UNK
     Route: 065
     Dates: start: 20200926
  2. TOLVAPTAN [Suspect]
     Active Substance: TOLVAPTAN
     Indication: Congenital cystic kidney disease
  3. WELLBUTRIN [Concomitant]
     Active Substance: BUPROPION HYDROCHLORIDE
     Indication: Product used for unknown indication
     Dosage: 100 MG, QD
     Route: 048
  4. MYCOSTATIN [Concomitant]
     Active Substance: NYSTATIN
     Indication: Product used for unknown indication
     Dosage: APPLY TOPICALLY 3 TIMES 60 G DAILY
     Route: 061
  5. LIPITOR [Concomitant]
     Active Substance: ATORVASTATIN CALCIUM
     Indication: Product used for unknown indication
     Dosage: 90 MG, QD
     Route: 048
  6. STELARA [Concomitant]
     Active Substance: USTEKINUMAB
     Indication: Product used for unknown indication
     Dosage: UNK
     Route: 065
  7. CARDURA [Concomitant]
     Active Substance: DOXAZOSIN MESYLATE
     Indication: Product used for unknown indication
     Dosage: 1 DF, QD (NIGHTLY)
     Route: 048
  8. PRISTIQ EXTENDED-RELEASE [Concomitant]
     Active Substance: DESVENLAFAXINE SUCCINATE
     Indication: Product used for unknown indication
     Dosage: 1 DF, QD
     Route: 048
  9. REXULTI [Concomitant]
     Active Substance: BREXPIPRAZOLE
     Indication: Product used for unknown indication
     Dosage: 1 DF, QD
     Route: 048
  10. PRILOSEC [Concomitant]
     Active Substance: OMEPRAZOLE MAGNESIUM
     Indication: Product used for unknown indication
     Dosage: 40 MG, QD (NIGHTLY)
     Route: 048
  11. ZOFRAN [Concomitant]
     Active Substance: ONDANSETRON HYDROCHLORIDE
     Indication: Product used for unknown indication
     Dosage: TAKE EVERY SIX HOURS AS NEEDED
     Route: 065

REACTIONS (30)
  - Hepatitis acute [Unknown]
  - Surgery [Unknown]
  - Hepatic lesion [Unknown]
  - Fluid intake reduced [Unknown]
  - Fasting [Unknown]
  - Obstructive sleep apnoea syndrome [Unknown]
  - Drug intolerance [Unknown]
  - Early satiety [Unknown]
  - Diverticulum [Unknown]
  - Abnormal faeces [Unknown]
  - Incisional hernia [Unknown]
  - Enteritis [Unknown]
  - Change of bowel habit [Unknown]
  - Somnolence [Unknown]
  - Tachycardia [Unknown]
  - Bronchitis chronic [Unknown]
  - Irritable bowel syndrome [Unknown]
  - Pain [Unknown]
  - Blood phosphorus decreased [Not Recovered/Not Resolved]
  - Lethargy [Unknown]
  - Localised oedema [Recovering/Resolving]
  - Blood urea increased [Not Recovered/Not Resolved]
  - Blood creatinine increased [Not Recovered/Not Resolved]
  - Weight increased [Unknown]
  - Blood glucose increased [Not Recovered/Not Resolved]
  - Fatigue [Not Recovered/Not Resolved]
  - Transaminases increased [Not Recovered/Not Resolved]
  - Diarrhoea [Unknown]
  - Thirst [Unknown]
  - Polyuria [Recovering/Resolving]

NARRATIVE: CASE EVENT DATE: 20210823
